FAERS Safety Report 4294094-4 (Version None)
Quarter: 2004Q1

REPORT INFORMATION
  Report Type: 
  Country: None (occurrence: None)
  Receive Date: 20040212
  Receipt Date: 20040212
  Transmission Date: 20041129
  Serious: Yes (Life-Threatening, Hospitalization)
  Sender: FDA-Public Use
  Company Number: None

PATIENT
  Age: 66 Year
  Sex: Male
  Weight: 70.3075 kg

DRUGS (2)
  1. METHYSERGIDE 4 MG [Suspect]
     Indication: MIGRAINE
     Dosage: 4 MG DAILY ORAL
     Route: 048
     Dates: start: 20030105, end: 20030121
  2. ASPIRIN 650 MG [Suspect]
     Indication: HEADACHE
     Dosage: 650 MG AS NEEDED ORAL
     Route: 048
     Dates: start: 20030901, end: 20040121

REACTIONS (4)
  - ABDOMINAL PAIN UPPER [None]
  - DEHYDRATION [None]
  - RETROPERITONEAL FIBROSIS [None]
  - VOMITING [None]
